FAERS Safety Report 25961873 (Version 1)
Quarter: 2025Q4

REPORT INFORMATION
  Report Type: Spontaneous
  Country: EU (occurrence: EU)
  Receive Date: 20251027
  Receipt Date: 20251027
  Transmission Date: 20260117
  Serious: Yes (Life-Threatening, Hospitalization, Other)
  Sender: GLAXOSMITHKLINE
  Company Number: None

PATIENT
  Age: 78 Year
  Sex: Female
  Weight: 59 kg

DRUGS (3)
  1. JEMPERLI [Suspect]
     Active Substance: DOSTARLIMAB-GXLY
     Indication: Metastatic uterine cancer
     Dosage: 1000 MG (DOSAGE: 1000 MG WITH UNKNOWN INTERVALS. MOST RECENTLY RECEIVED ON 07AUG2025)
  2. PACLITAXEL [Concomitant]
     Active Substance: PACLITAXEL
     Indication: Metastatic uterine cancer
     Dosage: UNKNOWN START DATE, BUT MOST RECENTLY RECEIVED ON 07AUG2025
     Route: 065
  3. CARBOPLATIN [Concomitant]
     Active Substance: CARBOPLATIN
     Indication: Metastatic uterine cancer
     Dosage: UNKNOWN START DATE, BUT MOST RECENTLY RECEIVED ON 07AUG2025
     Route: 065

REACTIONS (5)
  - Encephalopathy [Not Recovered/Not Resolved]
  - Cognitive disorder [Not Recovered/Not Resolved]
  - Depressed level of consciousness [Not Recovered/Not Resolved]
  - Abnormal behaviour [Not Recovered/Not Resolved]
  - Somnolence [Not Recovered/Not Resolved]

NARRATIVE: CASE EVENT DATE: 20250928
